FAERS Safety Report 7438429-X (Version None)
Quarter: 2011Q2

REPORT INFORMATION
  Report Type: 
  Country: None (occurrence: None)
  Receive Date: 20110418
  Receipt Date: 20110407
  Transmission Date: 20111010
  Serious: Yes (Other)
  Sender: FDA-Public Use
  Company Number: 2009-04647

PATIENT
  Age: 82 Year
  Sex: Male

DRUGS (9)
  1. VELCADE [Suspect]
     Indication: MULTIPLE MYELOMA
     Dosage: 2 MG,
  2. LOPRESOR /00376902/ (METOPROLOL TARTRATE) [Concomitant]
  3. FOSAMAX [Concomitant]
  4. MOBIC [Concomitant]
  5. TAKEPRON (LANSOPRAZOLE) [Concomitant]
  6. ACECOL (TEMOCAPRIL HYDROCHLORIDE) [Concomitant]
  7. PREDNISOLONE [Concomitant]
  8. VOLTAREN [Concomitant]
  9. ALKERAN [Concomitant]

REACTIONS (1)
  - PYODERMA GANGRENOSUM [None]
